FAERS Safety Report 7295732-4 (Version None)
Quarter: 2011Q1

REPORT INFORMATION
  Report Type: 
  Country: None (occurrence: None)
  Receive Date: 20110216
  Receipt Date: 20101214
  Transmission Date: 20110831
  Serious: No
  Sender: FDA-Public Use
  Company Number: US-ABBOTT-10P-163-0692213-00

PATIENT
  Sex: Male
  Weight: 120.31 kg

DRUGS (1)
  1. SIMCOR [Suspect]
     Indication: BLOOD CHOLESTEROL INCREASED
     Dates: start: 20101202

REACTIONS (4)
  - MIDDLE INSOMNIA [None]
  - SKIN WARM [None]
  - PRURITUS [None]
  - ERYTHEMA [None]
